FAERS Safety Report 9479641 (Version 3)
Quarter: 2013Q3

REPORT INFORMATION
  Report Type: Report from Study
  Country: TH (occurrence: TH)
  Receive Date: 20130827
  Receipt Date: 20130918
  Transmission Date: 20140515
  Serious: Yes (Death, Other)
  Sender: FDA-Public Use
  Company Number: PHHY2013TH092745

PATIENT
  Sex: Male

DRUGS (2)
  1. TASIGNA [Suspect]
     Indication: CHRONIC MYELOID LEUKAEMIA
     Dosage: 400 MG, BID
     Route: 048
     Dates: start: 20111228
  2. HYDROXYUREA [Concomitant]
     Dosage: 1000 MG, QD
     Route: 048
     Dates: start: 20120711

REACTIONS (7)
  - Cardiac failure [Fatal]
  - Fatigue [Fatal]
  - Oedema [Fatal]
  - Chronic myeloid leukaemia [Fatal]
  - Malignant neoplasm progression [Fatal]
  - Drug resistance [Unknown]
  - Anaemia [Unknown]
